FAERS Safety Report 22232836 (Version 1)
Quarter: 2023Q2

REPORT INFORMATION
  Report Type: Other
  Country: US (occurrence: None)
  Receive Date: 20230420
  Receipt Date: 20230420
  Transmission Date: 20230722
  Serious: Yes (Other)
  Sender: FDA-Public Use
  Company Number: US-ROCHE-3154429

PATIENT

DRUGS (2)
  1. AVASTIN [Suspect]
     Active Substance: BEVACIZUMAB
     Indication: Optic glioma
     Route: 065
  2. ERDAFITINIB [Concomitant]
     Active Substance: ERDAFITINIB

REACTIONS (1)
  - Tumour haemorrhage [Unknown]
